FAERS Safety Report 19919890 (Version 2)
Quarter: 2021Q4

REPORT INFORMATION
  Report Type: Report from Study
  Country: US (occurrence: None)
  Receive Date: 20211005
  Receipt Date: 20211108
  Transmission Date: 20220303
  Serious: Yes (Hospitalization, Other)
  Sender: FDA-Public Use
  Company Number: US-ROCHE-2885536

PATIENT
  Age: 68 Year
  Sex: Female
  Weight: 50.6 kg

DRUGS (4)
  1. ATEZOLIZUMAB [Suspect]
     Active Substance: ATEZOLIZUMAB
     Indication: Diffuse large B-cell lymphoma
     Dosage: 60 MINUTES ON DAY 1 AND 15?CYCLE = 28 DAYS, CYCLE 2+?CYCLE = 21 DAYS, MAINTENANCE?ATEZOLIZUMAB (MPDL
     Route: 042
     Dates: start: 20210409
  2. RITUXIMAB [Suspect]
     Active Substance: RITUXIMAB
     Indication: Diffuse large B-cell lymphoma
     Dosage: ON DAY 1 AND 15?CYCLE = 14 DAYS, CYCLE 1?ON 30/APR/2021, MOST RECENT DOSE RECEIVED.
     Route: 041
     Dates: start: 20210319
  3. GEMCITABINE [Suspect]
     Active Substance: GEMCITABINE
     Indication: Diffuse large B-cell lymphoma
     Dosage: ON DAY 1 AND 15?CYCLE = 14 DAYS, CYCLE 1?ON 30/APR/2021, MOST RECENT DOSE RECEIVED.
     Route: 042
     Dates: start: 20210319
  4. OXALIPLATIN [Suspect]
     Active Substance: OXALIPLATIN
     Indication: Diffuse large B-cell lymphoma
     Dosage: ON DAY 1 AND 15?CYCLE = 14 DAYS, CYCLE 1?ON 30/APR/2021, MOST RECENT DOSE RECEIVED.
     Route: 042
     Dates: start: 20210319

REACTIONS (13)
  - Lower gastrointestinal haemorrhage [Unknown]
  - Muscular weakness [Unknown]
  - Pain in extremity [Unknown]
  - Urinary tract obstruction [Unknown]
  - Hypokalaemia [Recovered/Resolved]
  - Clostridium difficile infection [Unknown]
  - Urinary tract infection [Recovered/Resolved]
  - Colitis [Recovered/Resolved]
  - Anaemia [Unknown]
  - Lymphocyte count decreased [Unknown]
  - Neutrophil count decreased [Unknown]
  - Platelet count decreased [Unknown]
  - White blood cell count decreased [Unknown]

NARRATIVE: CASE EVENT DATE: 20210430
